FAERS Safety Report 8625030-5 (Version None)
Quarter: 2012Q3

REPORT INFORMATION
  Report Type: 
  Country: None (occurrence: None)
  Receive Date: 20120827
  Receipt Date: 20120816
  Transmission Date: 20120928
  Serious: Yes (Other)
  Sender: FDA-Public Use
  Company Number: US-VERTEX PHARMACEUTICAL INC.-2012-019664

PATIENT
  Sex: Male
  Weight: 157 kg

DRUGS (6)
  1. PEGINTERFERON ALFA-2A [Suspect]
     Dosage: UNK
     Dates: start: 20120524
  2. SERTRALINE HYDROCHLORIDE [Concomitant]
  3. METHADONE HCL [Concomitant]
  4. RIBAVIRIN [Concomitant]
     Indication: HEPATITIS C
  5. INCIVEK [Suspect]
     Indication: HEPATITIS C
     Dosage: UNK
     Route: 048
     Dates: start: 20120524, end: 20120810
  6. SEROQUEL [Concomitant]

REACTIONS (2)
  - DEPRESSION [None]
  - SUICIDAL IDEATION [None]
